FAERS Safety Report 5220111-0 (Version None)
Quarter: 2006Q4

REPORT INFORMATION
  Report Type: 
  Country: None (occurrence: None)
  Receive Date: 20061121
  Receipt Date: 20060809
  Transmission Date: 20070319
  Serious: No
  Sender: FDA-Public Use
  Company Number: TPA2006A01302

PATIENT
  Sex: Female

DRUGS (3)
  1. ROZEREM [Suspect]
     Indication: DRUG USE FOR UNKNOWN INDICATION
     Dosage: UNK, UNKNOWN, PER ORAL
     Route: 048
  2. LUNESTA [Concomitant]
  3. AMBIEN [Concomitant]

REACTIONS (1)
  - DRUG INEFFECTIVE [None]
